FAERS Safety Report 5287432-7 (Version None)
Quarter: 2007Q1

REPORT INFORMATION
  Report Type: 
  Country: None (occurrence: None)
  Receive Date: 20070116
  Receipt Date: 20060922
  Transmission Date: 20070707
  Serious: No
  Sender: FDA-Public Use
  Company Number: 2006SP003396

PATIENT
  Age: 50 Year
  Sex: Male
  Weight: 78.9259 kg

DRUGS (5)
  1. LUNESTA [Suspect]
     Indication: INSOMNIA
     Dosage: 3 MG ORAL
     Route: 048
     Dates: start: 20060901
  2. PROZAC [Concomitant]
  3. ZYPREXA [Concomitant]
  4. KLONOPIN [Concomitant]
  5. AMBIEN [Concomitant]

REACTIONS (1)
  - DYSGEUSIA [None]
